FAERS Safety Report 9716240 (Version 1)
Quarter: 2013Q4

REPORT INFORMATION
  Report Type: Spontaneous
  Country: US (occurrence: None)
  Receive Date: 20131126
  Receipt Date: 20131126
  Transmission Date: 20140711
  Serious: No
  Sender: FDA-Public Use
  Company Number: None

PATIENT
  Age: 87 Year
  Sex: Male
  Weight: 85.4 kg

DRUGS (1)
  1. ALENDRONATE [Suspect]
     Route: 048
     Dates: start: 20130501, end: 20130906

REACTIONS (1)
  - Osteonecrosis [None]
